FAERS Safety Report 16581035 (Version 1)
Quarter: 2019Q3

REPORT INFORMATION
  Report Type: Spontaneous
  Country: DE (occurrence: DE)
  Receive Date: 20190716
  Receipt Date: 20190716
  Transmission Date: 20191004
  Serious: Yes (Life-Threatening, Hospitalization)
  Sender: FDA-Public Use
  Company Number: DE-SA-2019SA190548

PATIENT
  Age: 80 Year
  Sex: Male
  Weight: 77 kg

DRUGS (5)
  1. FUROSEMID [FUROSEMIDE] [Concomitant]
     Active Substance: FUROSEMIDE
     Dosage: 40 MG, 0.5-0-0-0
     Route: 048
  2. NOVORAPID [Suspect]
     Active Substance: INSULIN ASPART
     Dosage: 100 IU/ML, ACCORDING TO PLAN, INJECTION/INFUSION SOLUTION
     Route: 058
  3. ZANIPRIL [Concomitant]
     Active Substance: ENALAPRIL MALEATE\LERCANIDIPINE HYDROCHLORIDE
     Dosage: 10|10 MG, 0-0-1-0, TABLET
     Route: 048
  4. LANTUS SOLOSTAR [Suspect]
     Active Substance: INSULIN GLARGINE
     Dosage: 100 IU/ML, 0-0-12-0, INJECTION/INFUSION SOLUTION
     Route: 058
  5. METHOTREXAT [METHOTREXATE] [Concomitant]
     Active Substance: METHOTREXATE
     Dosage: NK MG, ACCORDING TO SCHEME, INJECTION/INFUSION SOLUTION
     Route: 058

REACTIONS (4)
  - Dizziness [Unknown]
  - Tremor [Unknown]
  - Hypoglycaemia [Unknown]
  - Product prescribing error [Unknown]
